FAERS Safety Report 6665377-5 (Version None)
Quarter: 2010Q1

REPORT INFORMATION
  Report Type: 
  Country: None (occurrence: None)
  Receive Date: 20100331
  Receipt Date: 20100318
  Transmission Date: 20100710
  Serious: Yes (Hospitalization)
  Sender: FDA-Public Use
  Company Number: 009010

PATIENT
  Sex: Male
  Weight: 89.0865 kg

DRUGS (13)
  1. ROTIGOTINE [Suspect]
     Indication: PARKINSON'S DISEASE
     Dosage: (6 MG 1X/24 HOURS TRANSDERMAL)
     Route: 062
     Dates: start: 20090106
  2. CALCIUM [Concomitant]
  3. CARBIDOPA-LEVODOPA [Concomitant]
  4. FLOMAX [Concomitant]
  5. TASMAR [Concomitant]
  6. AMANTADINE HCL [Concomitant]
  7. REQUIP [Concomitant]
  8. MIRALAX [Concomitant]
  9. RANITIDINE HCL [Concomitant]
  10. PREVACID [Concomitant]
  11. VITAMIN E [Concomitant]
  12. ASPIRIN [Concomitant]
  13. CARBIDOPA-LEVODOPA [Concomitant]

REACTIONS (3)
  - ACUTE MYOCARDIAL INFARCTION [None]
  - CORONARY ARTERY DISEASE [None]
  - FALL [None]
